FAERS Safety Report 5605899-9 (Version None)
Quarter: 2008Q1

REPORT INFORMATION
  Report Type: 
  Country: None (occurrence: None)
  Receive Date: 20080124
  Receipt Date: 20080111
  Transmission Date: 20080703
  Serious: Yes (Hospitalization)
  Sender: FDA-Public Use
  Company Number: S07-FRA-05327-01

PATIENT
  Age: 94 Year
  Sex: Female
  Weight: 70 kg

DRUGS (21)
  1. MONUROL [Suspect]
     Dosage: 3 G PO
     Route: 048
     Dates: end: 20070702
  2. PRETERAX [Suspect]
     Dates: end: 20070702
  3. IPERTEN (MANIDIPINE HYDROCHLORIDE) [Suspect]
  4. TEMERIT (NEBIVOLOL) [Suspect]
  5. LASIX [Suspect]
     Dosage: 20 MG
  6. MEDIATENSYL (URAPIDIL) [Suspect]
  7. DISCOTRINE (GLYCERYL TRINITRATE) [Suspect]
  8. PLAVIX [Suspect]
  9. VASTAREL (TRIMETAZIDINE) [Suspect]
     Dosage: 35 MG QD PO
     Route: 048
     Dates: end: 20070702
  10. PANTOPRAZOLE SODIUM [Suspect]
     Dosage: 20 MG PO
     Route: 048
     Dates: end: 20070702
  11. DI-ANTALVIC [Suspect]
     Dates: end: 20070702
  12. LANSOYL (PARAFFIN, LIQUID) [Suspect]
     Dates: end: 20070702
  13. VOLTAREN [Suspect]
  14. FENOFIBRATE [Suspect]
  15. DURAGESIC-100 [Suspect]
     Dates: start: 20070618, end: 20070629
  16. MOTILYO (DOMPERIDONE) [Suspect]
  17. ACARBOSE [Suspect]
  18. BACTRIM [Suspect]
     Dates: start: 20070604, end: 20070620
  19. FLECTOR EP GEL (DICLOFENAC EPOLAMINUM) [Suspect]
  20. DAFALGAN CODEINE [Suspect]
  21. IRBESARTAN [Concomitant]

REACTIONS (4)
  - BLOOD CREATININE INCREASED [None]
  - BLOOD POTASSIUM INCREASED [None]
  - BUNDLE BRANCH BLOCK LEFT [None]
  - RENAL FAILURE [None]
